FAERS Safety Report 5399609-0 (Version None)
Quarter: 2007Q3

REPORT INFORMATION
  Report Type: 
  Country: None (occurrence: None)
  Receive Date: 20070727
  Receipt Date: 20070724
  Transmission Date: 20080115
  Serious: Yes (Other)
  Sender: FDA-Public Use
  Company Number: JP-BRISTOL-MYERS SQUIBB COMPANY-13859517

PATIENT
  Age: 2 Year
  Sex: Male

DRUGS (5)
  1. VEPESID [Suspect]
     Indication: EPENDYMOMA
     Route: 041
     Dates: start: 20070221, end: 20070222
  2. BRIPLATIN [Suspect]
     Indication: EPENDYMOMA
     Route: 041
     Dates: start: 20070220, end: 20070220
  3. ONCOVIN [Concomitant]
     Indication: EPENDYMOMA
     Dates: start: 20070220, end: 20070220
  4. CYCLOPHOSPHAMIDE [Concomitant]
     Indication: EPENDYMOMA
     Dates: start: 20070221, end: 20070222
  5. ITRACONAZOLE [Concomitant]
     Indication: CATHETER SEPSIS
     Dates: start: 20070223, end: 20070301

REACTIONS (4)
  - BONE MARROW FAILURE [None]
  - HYDROCEPHALUS [None]
  - INAPPROPRIATE ANTIDIURETIC HORMONE SECRETION [None]
  - INTESTINAL OBSTRUCTION [None]
